FAERS Safety Report 25547009 (Version 2)
Quarter: 2025Q3

REPORT INFORMATION
  Report Type: Spontaneous
  Country: US (occurrence: US)
  Receive Date: 20250714
  Receipt Date: 20250808
  Transmission Date: 20251021
  Serious: Yes (Hospitalization)
  Sender: ROCHE
  Company Number: US-ROCHE-10000335710

PATIENT
  Age: 13 Year
  Sex: Male
  Weight: 63.5 kg

DRUGS (1)
  1. HEMLIBRA [Suspect]
     Active Substance: EMICIZUMAB-KXWH
     Indication: Factor VIII deficiency
     Dosage: STRENGTH: 60MG/0.4ML
     Route: 058
     Dates: start: 202201

REACTIONS (2)
  - Testicular torsion [Unknown]
  - Incision site complication [Unknown]

NARRATIVE: CASE EVENT DATE: 20250626
